FAERS Safety Report 22324965 (Version 1)
Quarter: 2023Q2

REPORT INFORMATION
  Report Type: Spontaneous
  Country: US (occurrence: None)
  Receive Date: 20230514
  Receipt Date: 20230514
  Transmission Date: 20230721
  Serious: No
  Sender: FDA-Public Use
  Company Number: None

PATIENT
  Age: 69 Year
  Sex: Male
  Weight: 69.75 kg

DRUGS (3)
  1. POLYMYXIN B SULFATE AND TRIMETHOPRIM [Suspect]
     Active Substance: POLYMYXIN B SULFATE\TRIMETHOPRIM SULFATE
     Indication: Conjunctivitis
     Dosage: OTHER QUANTITY : 1 DROP(S);?FREQUENCY : EVERY 4 HOURS;?
     Route: 047
     Dates: start: 20230506, end: 20230507
  2. VITAMIN D [Concomitant]
     Active Substance: VITAMIN D NOS
  3. 2000 international units [Concomitant]

REACTIONS (8)
  - Ocular hyperaemia [None]
  - Condition aggravated [None]
  - Eye pruritus [None]
  - Lacrimation increased [None]
  - Eye swelling [None]
  - Glassy eyes [None]
  - Vision blurred [None]
  - Eye discharge [None]

NARRATIVE: CASE EVENT DATE: 20230507
